FAERS Safety Report 9541042 (Version 1)
Quarter: 2013Q3

REPORT INFORMATION
  Report Type: Spontaneous
  Country: DE (occurrence: DE)
  Receive Date: 20130922
  Receipt Date: 20130922
  Transmission Date: 20140515
  Serious: Yes (Other)
  Sender: FDA-Public Use
  Company Number: DE-MERCK-1309DEU007154

PATIENT
  Age: 75 Year
  Sex: Male

DRUGS (1)
  1. ZOCOR 20MG [Suspect]
     Indication: HYPERCHOLESTEROLAEMIA
     Dosage: 20 MG, QD
     Route: 048

REACTIONS (3)
  - Prostate cancer [Unknown]
  - Muscle rupture [Unknown]
  - Myalgia [Unknown]
